FAERS Safety Report 15127254 (Version 1)
Quarter: 2018Q3

REPORT INFORMATION
  Report Type: Spontaneous
  Country: US (occurrence: US)
  Receive Date: 20180710
  Receipt Date: 20180710
  Transmission Date: 20181010
  Serious: Yes (Other)
  Sender: FDA-Public Use
  Company Number: US-SA-2018SA033517

PATIENT
  Sex: Female

DRUGS (2)
  1. TAXOTERE [Suspect]
     Active Substance: DOCETAXEL
     Indication: BREAST CANCER
     Dosage: 125 MG, Q3W
     Route: 051
     Dates: start: 20120626, end: 20120626
  2. TAXOTERE [Suspect]
     Active Substance: DOCETAXEL
     Dosage: 148 MG, Q3W
     Route: 051
     Dates: start: 20121009, end: 20121009

REACTIONS (6)
  - Anxiety [Unknown]
  - Emotional distress [Unknown]
  - Psychological trauma [Unknown]
  - Alopecia [Recovering/Resolving]
  - Impaired quality of life [Unknown]
  - Pain [Unknown]
